FAERS Safety Report 6880520-0 (Version None)
Quarter: 2010Q3

REPORT INFORMATION
  Report Type: 
  Country: None (occurrence: None)
  Receive Date: 20100727
  Receipt Date: 20100719
  Transmission Date: 20110219
  Serious: Yes (Hospitalization)
  Sender: FDA-Public Use
  Company Number: B0665994A

PATIENT
  Sex: Male

DRUGS (12)
  1. WELLVONE [Suspect]
     Indication: HIV INFECTION
     Dosage: 750MG TWICE PER DAY
     Route: 048
     Dates: start: 20091127, end: 20091202
  2. TRIZIVIR [Suspect]
     Indication: HIV INFECTION
     Route: 048
     Dates: start: 20091123, end: 20091126
  3. AMOXICILLINE + ACIDE CLAVULANIQUE [Suspect]
     Route: 048
     Dates: start: 20091124, end: 20091204
  4. COMBIVIR [Suspect]
     Indication: HIV INFECTION
     Route: 065
     Dates: start: 20091127
  5. GLUCOPHAGE [Suspect]
     Dosage: 1700MG PER DAY
     Route: 048
     Dates: start: 20091116, end: 20091126
  6. OFLOCET [Suspect]
     Route: 001
     Dates: start: 20091124, end: 20091201
  7. BACTRIM [Suspect]
     Indication: PRODUCT USED FOR UNKNOWN INDICATION
     Dosage: 1UNIT PER DAY
     Route: 048
     Dates: start: 20091117, end: 20091126
  8. DIPROSONE [Concomitant]
     Indication: PRODUCT USED FOR UNKNOWN INDICATION
     Route: 065
  9. SALICYLIC ACID + VASELINE [Concomitant]
     Indication: PRODUCT USED FOR UNKNOWN INDICATION
     Route: 065
  10. FOLINORAL [Concomitant]
     Indication: PRODUCT USED FOR UNKNOWN INDICATION
     Dosage: 25MG PER DAY
     Route: 065
  11. IMOVANE [Concomitant]
     Indication: PRODUCT USED FOR UNKNOWN INDICATION
     Route: 065
  12. KALETRA [Concomitant]
     Indication: HIV INFECTION
     Route: 065
     Dates: start: 20091123

REACTIONS (5)
  - ALANINE AMINOTRANSFERASE INCREASED [None]
  - ASPARTATE AMINOTRANSFERASE INCREASED [None]
  - BLOOD CREATINE PHOSPHOKINASE INCREASED [None]
  - DRUG HYPERSENSITIVITY [None]
  - HYPERBILIRUBINAEMIA [None]
